FAERS Safety Report 8336191-X (Version None)
Quarter: 2012Q2

REPORT INFORMATION
  Report Type: 
  Country: None (occurrence: None)
  Receive Date: 20120504
  Receipt Date: 20120427
  Transmission Date: 20120825
  Serious: No
  Sender: FDA-Public Use
  Company Number: US-PFIZER INC-2012105321

PATIENT
  Sex: Male
  Weight: 90.7 kg

DRUGS (8)
  1. PLAVIX [Concomitant]
     Dosage: 75 MG, 1X/DAY
  2. COREG [Concomitant]
     Dosage: 6.5 MG, 1X/DAY
  3. LISINOPRIL [Concomitant]
     Dosage: 5 MG, 1X/DAY
  4. TOVIAZ [Suspect]
     Indication: HYPERTONIC BLADDER
     Dosage: 4 MG, 1X/DAY
     Route: 048
     Dates: start: 20120412, end: 20120426
  5. TOVIAZ [Suspect]
     Dosage: 8 MG, 1X/DAY
     Route: 048
     Dates: start: 20120426, end: 20120427
  6. VYTORIN [Concomitant]
     Dosage: 10/5 MG, 1X/DAY
  7. ACETYLSALICYLIC ACID [Concomitant]
     Dosage: UNK, 1X/DAY
  8. LORAZEPAM [Concomitant]
     Dosage: UNK, 1X/DAY

REACTIONS (4)
  - FEELING ABNORMAL [None]
  - GAIT DISTURBANCE [None]
  - DIZZINESS [None]
  - DYSKINESIA [None]
